FAERS Safety Report 5060014-8 (Version None)
Quarter: 2006Q3

REPORT INFORMATION
  Report Type: 
  Country: None (occurrence: None)
  Receive Date: 20060724
  Receipt Date: 20060720
  Transmission Date: 20061208
  Serious: Yes (Death)
  Sender: FDA-Public Use
  Company Number: FR-BRISTOL-MYERS SQUIBB COMPANY-13450572

PATIENT
  Age: 64 Year
  Sex: Male

DRUGS (8)
  1. ERBITUX [Suspect]
     Indication: HEPATIC NEOPLASM MALIGNANT
     Route: 042
     Dates: start: 20060313, end: 20060516
  2. OXALIPLATIN [Suspect]
     Indication: HEPATIC NEOPLASM MALIGNANT
     Route: 042
     Dates: start: 20060314, end: 20060510
  3. GEMCITABINE [Suspect]
     Indication: HEPATIC NEOPLASM MALIGNANT
     Route: 042
     Dates: start: 20060313, end: 20060509
  4. PROPRANOLOL [Concomitant]
     Indication: VARICES OESOPHAGEAL
     Dates: start: 20050701
  5. NORFLOXACIN [Concomitant]
     Indication: INFECTION PROPHYLAXIS
  6. TINZAPARIN [Concomitant]
     Indication: VENOUS THROMBOSIS
  7. TRIMEBUTINE [Concomitant]
     Indication: ABDOMINAL PAIN
  8. MORPHINE [Concomitant]
     Indication: PAIN
     Dates: start: 20060515

REACTIONS (1)
  - DEATH [None]
